FAERS Safety Report 9944504 (Version 1)
Quarter: 2014Q1

REPORT INFORMATION
  Report Type: Report from Study
  Country: US (occurrence: US)
  Receive Date: 20140303
  Receipt Date: 20140303
  Transmission Date: 20141002
  Serious: No
  Sender: FDA-Public Use
  Company Number: US-ABBVIE-13P-163-1051370-00

PATIENT
  Age: 48 Year
  Sex: Female

DRUGS (2)
  1. HUMIRA [Suspect]
     Indication: COLITIS MICROSCOPIC
     Dosage: ON THURSDAYS
     Route: 058
     Dates: start: 20121105
  2. HUMIRA [Suspect]
     Dosage: ON FRIDAYS
     Dates: start: 20130201

REACTIONS (1)
  - Fatigue [Unknown]
